FAERS Safety Report 12046999 (Version 1)
Quarter: 2016Q1

REPORT INFORMATION
  Report Type: Spontaneous
  Country: US (occurrence: US)
  Receive Date: 20160208
  Receipt Date: 20160208
  Transmission Date: 20160526
  Serious: No
  Sender: FDA-Public Use
  Company Number: US-GLAXOSMITHKLINE-US2016016969

PATIENT
  Age: 28 Year
  Sex: Male

DRUGS (1)
  1. ABREVA [Suspect]
     Active Substance: DOCOSANOL
     Indication: ORAL HERPES
     Dosage: UNK, QID
     Dates: start: 20160120, end: 20160126

REACTIONS (2)
  - Incorrect drug administration duration [Unknown]
  - Inappropriate schedule of drug administration [Unknown]
